FAERS Safety Report 25895438 (Version 1)
Quarter: 2025Q4

REPORT INFORMATION
  Report Type: Spontaneous
  Country: US (occurrence: US)
  Receive Date: 20251008
  Receipt Date: 20251008
  Transmission Date: 20260118
  Serious: Yes (Life-Threatening, Hospitalization, Other)
  Sender: AUROBINDO
  Company Number: US-MLMSERVICE-20250922-PI652900-00117-1

PATIENT
  Age: 16 Year
  Sex: Female

DRUGS (7)
  1. DEXAMETHASONE [Suspect]
     Active Substance: DEXAMETHASONE
     Indication: T-cell type acute leukaemia
     Dosage: UNK
     Route: 065
  2. METHOTREXATE [Suspect]
     Active Substance: METHOTREXATE
     Indication: T-cell type acute leukaemia
     Dosage: UNK
     Route: 065
  3. DAUNORUBICIN [Suspect]
     Active Substance: DAUNORUBICIN
     Indication: T-cell type acute leukaemia
     Dosage: UNK
     Route: 065
  4. VINCRISTINE [Suspect]
     Active Substance: VINCRISTINE
     Indication: T-cell type acute leukaemia
     Dosage: UNK
     Route: 065
  5. SULFAMETHOXAZOLE\TRIMETHOPRIM [Concomitant]
     Active Substance: SULFAMETHOXAZOLE\TRIMETHOPRIM
     Indication: Prophylaxis
     Dosage: UNK
     Route: 065
  6. MICAFUNGIN [Concomitant]
     Active Substance: MICAFUNGIN SODIUM
     Indication: Prophylaxis
     Dosage: UNK
     Route: 065
  7. NORETHINDRONE [Concomitant]
     Active Substance: NORETHINDRONE
     Indication: Prophylaxis
     Dosage: UNK
     Route: 065

REACTIONS (8)
  - Thrombocytopenia [Recovering/Resolving]
  - Mucormycosis [Recovered/Resolved]
  - Cerebral fungal infection [Recovered/Resolved]
  - Ischaemic stroke [Recovered/Resolved]
  - Cerebral haemorrhage [Recovered/Resolved]
  - Generalised tonic-clonic seizure [Recovered/Resolved]
  - Monoparesis [Recovering/Resolving]
  - Steroid diabetes [Unknown]
